FAERS Safety Report 10009639 (Version 2)
Quarter: 2014Q1

REPORT INFORMATION
  Report Type: Spontaneous
  Country: US (occurrence: US)
  Receive Date: 20140312
  Receipt Date: 20140312
  Transmission Date: 20141002
  Serious: No
  Sender: FDA-Public Use
  Company Number: US-INCYTE CORPORATION-2012IN002176

PATIENT
  Age: 63 Year
  Sex: Male
  Weight: 103 kg

DRUGS (11)
  1. JAKAFI [Suspect]
     Indication: MYELOFIBROSIS
     Dosage: 15 MG, BID
     Route: 048
     Dates: start: 20120920
  2. FLOMAX [Concomitant]
  3. AVODART [Concomitant]
     Dosage: 1 UNK, QD
  4. VITAMIN C [Concomitant]
     Dosage: 1 G, QD
  5. FLAXSEED OIL [Concomitant]
     Dosage: 2 G, QD
  6. SALMON [Concomitant]
     Dosage: 2 G, QD
  7. LECITHIN [Concomitant]
     Dosage: 2 G, QD
  8. EFA [Concomitant]
     Dosage: 240 MG, QD
  9. COQ10 [Concomitant]
     Dosage: 100 MG, QD
  10. VITAMIN D [Concomitant]
     Dosage: 6000 UT, QD
  11. MULTIVITAMINS, PLAIN [Concomitant]
     Dosage: 1 UNK, QD

REACTIONS (5)
  - Leukocytosis [Recovered/Resolved]
  - Fatigue [Not Recovered/Not Resolved]
  - Dizziness [Recovered/Resolved]
  - Anaemia [Recovering/Resolving]
  - Thrombocytopenia [Recovering/Resolving]
